FAERS Safety Report 4455222-0 (Version None)
Quarter: 2004Q3

REPORT INFORMATION
  Report Type: 
  Country: None (occurrence: None)
  Receive Date: 20040917
  Receipt Date: 20040903
  Transmission Date: 20050211
  Serious: Yes (Hospitalization)
  Sender: FDA-Public Use
  Company Number: 2004-00796FE

PATIENT
  Age: 68 Year
  Sex: Female

DRUGS (1)
  1. MESALAMINE [Suspect]
     Indication: CROHN'S DISEASE

REACTIONS (2)
  - LUNG NEOPLASM [None]
  - LYMPHOCYTIC INFILTRATION [None]
